FAERS Safety Report 10301043 (Version 2)
Quarter: 2014Q3

REPORT INFORMATION
  Report Type: Report from Study
  Country: DE (occurrence: CL)
  Receive Date: 20140714
  Receipt Date: 20140714
  Transmission Date: 20150326
  Serious: Yes (Death, Other)
  Sender: FDA-Public Use
  Company Number: DE-ACTELION-A-US2014-101962

PATIENT
  Age: 59 Year
  Sex: Female

DRUGS (6)
  1. SILDENAFIL [Concomitant]
     Active Substance: SILDENAFIL
  2. NEO-SINTROM [Concomitant]
     Active Substance: ACENOCOUMAROL
  3. VENTAVIS [Suspect]
     Active Substance: ILOPROST
     Indication: PULMONARY HYPERTENSION
     Dosage: 5 MCG, 40 MCG TOTAL/DAY
     Route: 055
     Dates: start: 20140516, end: 20140618
  4. SPIRONOLACTONE. [Concomitant]
     Active Substance: SPIRONOLACTONE
  5. DILTIAZEM [Concomitant]
     Active Substance: DILTIAZEM
  6. ACETAMINOPHEN. [Concomitant]
     Active Substance: ACETAMINOPHEN

REACTIONS (5)
  - Syncope [Recovered/Resolved]
  - Localised oedema [Recovering/Resolving]
  - Syncope [Recovered/Resolved]
  - Oedema peripheral [Recovering/Resolving]
  - Cardio-respiratory arrest [Fatal]

NARRATIVE: CASE EVENT DATE: 20140529
